FAERS Safety Report 8746149 (Version 2)
Quarter: 2013Q3

REPORT INFORMATION
  Report Type: Report from Study
  Country: MX (occurrence: MX)
  Receive Date: 20120827
  Receipt Date: 20130731
  Transmission Date: 20140515
  Serious: Yes (Hospitalization)
  Sender: FDA-Public Use
  Company Number: PHHY2012MX072030

PATIENT
  Age: 59 Year
  Sex: Male

DRUGS (3)
  1. GALVUS MET [Suspect]
     Indication: DIABETES MELLITUS
     Dosage: 1 DF (1000MG METF/ 50 MG VILDA), DAILY
     Dates: start: 200908
  2. EXFORGE HCT [Suspect]
     Indication: HYPERTENSION
     Dosage: 1 DF, QD
     Dates: start: 201111
  3. BLODIVIT [Concomitant]

REACTIONS (2)
  - Coronary artery occlusion [Not Recovered/Not Resolved]
  - General physical condition abnormal [Not Recovered/Not Resolved]
